FAERS Safety Report 6240233-5 (Version None)
Quarter: 2009Q2

REPORT INFORMATION
  Report Type: 
  Country: None (occurrence: None)
  Receive Date: 20090623
  Receipt Date: 20080421
  Transmission Date: 20091009
  Serious: No
  Sender: FDA-Public Use
  Company Number: US-ASTRAZENECA-2008UW08081

PATIENT
  Age: 8 Year
  Sex: Male

DRUGS (2)
  1. PULMICORT RESPULES [Suspect]
     Indication: EOSINOPHILIC OESOPHAGITIS
     Dosage: TAKING RESPULES ORALLY, NOT NEBULIZER
     Route: 055
     Dates: start: 20060101
  2. PULMICORT RESPULES [Suspect]
     Dosage: TAKING RESPULES ORALLY, NOT NEBULIZER
     Route: 055

REACTIONS (4)
  - AFFECT LABILITY [None]
  - AGGRESSION [None]
  - ANXIETY [None]
  - INCORRECT ROUTE OF DRUG ADMINISTRATION [None]
